FAERS Safety Report 8255160-1 (Version None)
Quarter: 2012Q2

REPORT INFORMATION
  Report Type: 
  Country: None (occurrence: None)
  Receive Date: 20120403
  Receipt Date: 20120328
  Transmission Date: 20120825
  Serious: Yes (Death)
  Sender: FDA-Public Use
  Company Number: US-CELGENEUS-163-21880-12021298

PATIENT
  Sex: Male
  Weight: 74.411 kg

DRUGS (12)
  1. LEVAQUIN [Concomitant]
     Dosage: 500 MILLIGRAM
     Route: 065
  2. CELEBREX [Concomitant]
     Dosage: 200 MILLIGRAM
     Route: 065
  3. FLUCONAZOLE [Concomitant]
     Route: 065
  4. FLAGYL [Concomitant]
     Dosage: 500 MILLIGRAM
     Route: 065
  5. NYSTATIN [Concomitant]
     Route: 048
  6. LIPITOR [Concomitant]
     Dosage: 40 MILLIGRAM
     Route: 065
  7. REVLIMID [Suspect]
     Indication: NON-HODGKIN'S LYMPHOMA
     Dosage: 5 MILLIGRAM
     Route: 048
     Dates: start: 20120120, end: 20120124
  8. ATENOLOL [Concomitant]
     Dosage: 25 MILLIGRAM
     Route: 065
  9. DEXAMETHASONE [Concomitant]
     Dosage: 4 MILLIGRAM
     Route: 065
  10. MAGNESIUM OXIDE [Concomitant]
     Route: 065
  11. OXYCODONE HCL [Concomitant]
     Dosage: 15 MILLIGRAM
     Route: 065
  12. OXYCODONE HCL [Concomitant]
     Indication: PAIN
     Dosage: 5 MILLIGRAM
     Route: 065

REACTIONS (1)
  - NON-HODGKIN'S LYMPHOMA [None]
